FAERS Safety Report 13702129 (Version 1)
Quarter: 2017Q2

REPORT INFORMATION
  Report Type: Spontaneous
  Country: US (occurrence: US)
  Receive Date: 20170629
  Receipt Date: 20170629
  Transmission Date: 20170830
  Serious: No
  Sender: FDA-Public Use
  Company Number: US-JNJFOC-20170516040

PATIENT
  Age: 76 Year
  Sex: Male
  Weight: 66.23 kg

DRUGS (1)
  1. NIZORAL A-D [Suspect]
     Active Substance: KETOCONAZOLE
     Indication: DANDRUFF
     Dosage: DIME SIZE
     Route: 061
     Dates: start: 20170421

REACTIONS (2)
  - Ocular hyperaemia [Not Recovered/Not Resolved]
  - Eyelid margin crusting [Not Recovered/Not Resolved]

NARRATIVE: CASE EVENT DATE: 20170511
